FAERS Safety Report 15362949 (Version 4)
Quarter: 2018Q4

REPORT INFORMATION
  Report Type: Spontaneous
  Country: JP (occurrence: JP)
  Receive Date: 20180907
  Receipt Date: 20181129
  Transmission Date: 20190204
  Serious: Yes (Hospitalization)
  Sender: FDA-Public Use
  Company Number: JP-EISAI MEDICAL RESEARCH-EC-2018-044789

PATIENT
  Age: 66 Year
  Sex: Female
  Weight: 43 kg

DRUGS (3)
  1. LENVIMA [Suspect]
     Active Substance: LENVATINIB
     Route: 048
     Dates: start: 20180911, end: 20180924
  2. LENVIMA [Suspect]
     Active Substance: LENVATINIB
     Route: 048
     Dates: start: 20180908, end: 20180910
  3. LENVIMA [Suspect]
     Active Substance: LENVATINIB
     Indication: HEPATOCELLULAR CARCINOMA
     Route: 048
     Dates: start: 20180822, end: 20180903

REACTIONS (4)
  - Abdominal pain upper [Recovered/Resolved]
  - White blood cell count decreased [Recovered/Resolved]
  - Malaise [Unknown]
  - Proteinuria [Unknown]

NARRATIVE: CASE EVENT DATE: 20180828
